FAERS Safety Report 13887892 (Version 1)
Quarter: 2017Q3

REPORT INFORMATION
  Report Type: Spontaneous
  Country: US (occurrence: US)
  Receive Date: 20170821
  Receipt Date: 20170821
  Transmission Date: 20171127
  Serious: Yes (Other)
  Sender: FDA-Public Use
  Company Number: US-COVIS PHARMA B.V.-2017COV00273

PATIENT
  Sex: Female
  Weight: 73.47 kg

DRUGS (11)
  1. ROSUVASTATIN. [Suspect]
     Active Substance: ROSUVASTATIN
     Indication: BLOOD CHOLESTEROL
     Dosage: 10 MG, 1X/DAY
     Route: 048
  2. SIMETHICONE (DIMETHICONE) [Concomitant]
     Active Substance: DIMETHICONE
     Dosage: 80 MG, 4X/DAY
     Route: 048
  3. SERTRALINE [Concomitant]
     Active Substance: SERTRALINE HYDROCHLORIDE
     Dosage: 225 MG, 1X/DAY
     Route: 048
  4. TURMERIC [Concomitant]
     Active Substance: HERBALS\TURMERIC
     Dosage: 32 MG, 4X/DAY
     Route: 048
  5. CALCIUM [Concomitant]
     Active Substance: CALCIUM
     Dosage: 467 MG, 4X/DAY
     Route: 048
  6. NEXIUM [Suspect]
     Active Substance: ESOMEPRAZOLE MAGNESIUM
     Indication: GASTROOESOPHAGEAL REFLUX DISEASE
     Dosage: 20 MG, 2X/DAY
     Route: 048
  7. HCTZ [Concomitant]
     Active Substance: HYDROCHLOROTHIAZIDE
     Dosage: 25 MG, 1X/DAY
     Route: 048
  8. PRILOSEC [Suspect]
     Active Substance: OMEPRAZOLE MAGNESIUM
     Indication: GASTROOESOPHAGEAL REFLUX DISEASE
     Route: 048
  9. L-LYSINE [Concomitant]
     Active Substance: LYSINE
     Dosage: 1000 MG, 1X/DAY
     Route: 048
  10. CYCLOBENZAPRINE. [Concomitant]
     Active Substance: CYCLOBENZAPRINE
     Route: 048
  11. MULTIVITAMINS [Concomitant]
     Active Substance: VITAMINS

REACTIONS (18)
  - Anal incontinence [Unknown]
  - Osteopenia [Unknown]
  - Body height decreased [Unknown]
  - Gastrooesophageal reflux disease [Unknown]
  - Choking [Unknown]
  - Dizziness [Unknown]
  - Headache [Unknown]
  - Fall [Unknown]
  - Malaise [Not Recovered/Not Resolved]
  - Cough [Unknown]
  - Sleep disorder due to general medical condition, insomnia type [Unknown]
  - Amnesia [Unknown]
  - Balance disorder [Unknown]
  - Thyroid cancer [Unknown]
  - Urinary incontinence [Unknown]
  - Osteoporosis [Unknown]
  - Skin ulcer [Unknown]
  - Hypersensitivity [Unknown]

NARRATIVE: CASE EVENT DATE: 2016
